FAERS Safety Report 4366957-2 (Version None)
Quarter: 2004Q2

REPORT INFORMATION
  Report Type: 
  Country: None (occurrence: None)
  Receive Date: 20040524
  Receipt Date: 20040513
  Transmission Date: 20050107
  Serious: Yes (Hospitalization, Other)
  Sender: FDA-Public Use
  Company Number: 2004032440

PATIENT
  Sex: Female

DRUGS (3)
  1. DILANTIN INJ [Suspect]
     Indication: GRAND MAL CONVULSION
     Dosage: SEE IMAGE
     Route: 042
  2. ALPRAZOLAM [Concomitant]
  3. VICODIN [Concomitant]

REACTIONS (1)
  - HALLUCINATION, AUDITORY [None]
